FAERS Safety Report 25068448 (Version 1)
Quarter: 2025Q1

REPORT INFORMATION
  Report Type: Spontaneous
  Country: US (occurrence: None)
  Receive Date: 20250311
  Receipt Date: 20250311
  Transmission Date: 20250408
  Serious: Yes (Death)
  Sender: FDA-CTU
  Company Number: None

PATIENT
  Age: 27 Year
  Sex: Male
  Weight: 64.35 kg

DRUGS (3)
  1. NALOXONE [Suspect]
     Active Substance: NALOXONE
  2. AMIODARONE [Suspect]
     Active Substance: AMIODARONE
  3. EPINEPHRINE [Suspect]
     Active Substance: EPINEPHRINE

REACTIONS (5)
  - Heart rate decreased [None]
  - Dose calculation error [None]
  - Hypertension [None]
  - Incorrect dose administered [None]
  - Wrong product administered [None]

NARRATIVE: CASE EVENT DATE: 20221219
